FAERS Safety Report 11590087 (Version 3)
Quarter: 2016Q1

REPORT INFORMATION
  Report Type: Spontaneous
  Country: US (occurrence: US)
  Receive Date: 20151002
  Receipt Date: 20160208
  Transmission Date: 20160525
  Serious: Yes (Death, Hospitalization, Other)
  Sender: FDA-Public Use
  Company Number: US-009507513-1510USA000873

PATIENT
  Sex: Female
  Weight: 101.13 kg

DRUGS (13)
  1. JANUVIA [Suspect]
     Active Substance: SITAGLIPTIN PHOSPHATE
     Dosage: 50 MG, UNK
     Route: 048
     Dates: start: 20121203, end: 20121214
  2. IMDUR [Concomitant]
     Active Substance: ISOSORBIDE MONONITRATE
     Dosage: 120 MG, QD
     Route: 048
  3. LYRICA [Concomitant]
     Active Substance: PREGABALIN
     Dosage: 50 MG, BID
     Route: 048
  4. ATORVASTATIN [Concomitant]
     Active Substance: ATORVASTATIN
     Dosage: 10 MG, QD
     Route: 048
  5. LOSARTAN. [Concomitant]
     Active Substance: LOSARTAN
     Dosage: 100 MG, QD
     Route: 048
  6. LASIX [Concomitant]
     Active Substance: FUROSEMIDE
     Dosage: 40 MG, QD
     Route: 048
  7. LEVOTHYROXINE SODIUM. [Concomitant]
     Active Substance: LEVOTHYROXINE SODIUM
     Dosage: 50 MICROGRAM, QD
     Route: 048
  8. METFORMIN [Concomitant]
     Active Substance: METFORMIN HYDROCHLORIDE
     Dosage: 500 MG, QD
     Route: 048
  9. NEXIUM [Concomitant]
     Active Substance: ESOMEPRAZOLE MAGNESIUM
     Dosage: 40 MG, BID
     Route: 048
  10. METOPROLOL SUCCINATE. [Concomitant]
     Active Substance: METOPROLOL SUCCINATE
     Dosage: 25 MG, QD
     Route: 048
  11. JANUVIA [Suspect]
     Active Substance: SITAGLIPTIN PHOSPHATE
     Indication: TYPE 2 DIABETES MELLITUS
     Dosage: 100 MG, QD
     Route: 048
     Dates: start: 20121203, end: 201310
  12. BUSPIRONE HYDROCHLORIDE. [Concomitant]
     Active Substance: BUSPIRONE HYDROCHLORIDE
     Dosage: 10 MG, BID
     Route: 048
  13. POTASSIUM (UNSPECIFIED) [Concomitant]
     Active Substance: POTASSIUM
     Dosage: 10 MEQ, QD
     Route: 048

REACTIONS (38)
  - Ataxia [Unknown]
  - Bile duct stenosis [Unknown]
  - Gingivitis [Unknown]
  - Urinary tract infection [Unknown]
  - Muscular weakness [Unknown]
  - Dizziness [Unknown]
  - Gait disturbance [Unknown]
  - Hepatic cirrhosis [Unknown]
  - Hypothyroidism [Unknown]
  - Back pain [Unknown]
  - Oedema peripheral [Unknown]
  - Microcytic anaemia [Unknown]
  - Hallucination [Unknown]
  - Fall [Unknown]
  - Cardiomegaly [Unknown]
  - Renal cyst [Unknown]
  - Dyspnoea exertional [Unknown]
  - Vomiting [Unknown]
  - Headache [Unknown]
  - Confusional state [Unknown]
  - Asthenia [Unknown]
  - Dyspnoea paroxysmal nocturnal [Unknown]
  - Adenocarcinoma pancreas [Unknown]
  - Metastases to lymph nodes [Unknown]
  - Anxiety [Unknown]
  - Depression [Unknown]
  - Cardiac murmur [Unknown]
  - Ileus [Unknown]
  - Nausea [Unknown]
  - Death [Fatal]
  - Knee arthroplasty [Unknown]
  - Asthenia [Unknown]
  - Aortic disorder [Unknown]
  - Ascites [Unknown]
  - Anaemia macrocytic [Unknown]
  - Osteoarthritis [Unknown]
  - Orthopnoea [Unknown]
  - Gastrointestinal haemorrhage [Unknown]

NARRATIVE: CASE EVENT DATE: 201305
